FAERS Safety Report 5038816-3 (Version None)
Quarter: 2006Q2

REPORT INFORMATION
  Report Type: 
  Country: None (occurrence: None)
  Receive Date: 20060626
  Receipt Date: 20060612
  Transmission Date: 20061013
  Serious: Yes (Hospitalization)
  Sender: FDA-Public Use
  Company Number: 2006060041

PATIENT
  Age: 80 Year
  Sex: Female

DRUGS (2)
  1. MEPROBAMATE [Suspect]
     Indication: NERVOUSNESS
     Dosage: 2 TABLETS TID (400 MG), ORAL  1960'S
     Route: 048
  2. AMITRIPTYLLINE (AMITRIPTYLINE) [Concomitant]

REACTIONS (22)
  - AGITATION [None]
  - BLOOD GLUCOSE INCREASED [None]
  - BLOOD PRESSURE DIASTOLIC DECREASED [None]
  - BLOOD URINE PRESENT [None]
  - CEREBRAL ATROPHY [None]
  - CONVULSION [None]
  - DRUG WITHDRAWAL SYNDROME [None]
  - FALL [None]
  - GENERAL PHYSICAL HEALTH DETERIORATION [None]
  - HYPEREXPLEXIA [None]
  - HYPERTONIA [None]
  - LOSS OF CONSCIOUSNESS [None]
  - METABOLIC ACIDOSIS [None]
  - MYDRIASIS [None]
  - OSTEOARTHRITIS [None]
  - PHLEBITIS [None]
  - POVERTY OF SPEECH [None]
  - PROTEIN URINE PRESENT [None]
  - PSEUDOMONAL SEPSIS [None]
  - SINUS TACHYCARDIA [None]
  - SOMNOLENCE [None]
  - URINARY TRACT INFECTION [None]
